FAERS Safety Report 9701767 (Version 1)
Quarter: 2013Q4

REPORT INFORMATION
  Report Type: Spontaneous
  Country: DK (occurrence: DK)
  Receive Date: 20131121
  Receipt Date: 20131121
  Transmission Date: 20140711
  Serious: Yes (Hospitalization)
  Sender: FDA-Public Use
  Company Number: DK-TAKEDA-2013TUS002364

PATIENT
  Sex: 0

DRUGS (1)
  1. ADENURIC [Suspect]
     Indication: GOUT
     Dosage: UNK
     Route: 065
     Dates: start: 20130201, end: 20130901

REACTIONS (4)
  - Polyuria [Unknown]
  - Polydipsia [Unknown]
  - Visual impairment [Unknown]
  - Diabetes mellitus [Not Recovered/Not Resolved]
